FAERS Safety Report 10027789 (Version 2)
Quarter: 2014Q1

REPORT INFORMATION
  Report Type: Spontaneous
  Country: GB (occurrence: GB)
  Receive Date: 20140321
  Receipt Date: 20140331
  Transmission Date: 20141002
  Serious: Yes (Life-Threatening, Hospitalization)
  Sender: FDA-Public Use
  Company Number: GB-NOVOPROD-402864

PATIENT
  Age: 51 Year
  Sex: Female

DRUGS (16)
  1. VAGIFEM [Suspect]
     Indication: HYSTERECTOMY
     Dosage: 75 UG, BIW
     Route: 062
     Dates: start: 2009, end: 20140204
  2. AMITRIPTYLINE [Concomitant]
     Dosage: UNK
     Route: 065
  3. BUDESONIDE [Concomitant]
     Dosage: UNK
     Route: 065
  4. CALCICHEW D3 [Concomitant]
     Dosage: UNK
     Route: 065
  5. CLOPIDOGREL [Concomitant]
     Dosage: UNK
     Route: 065
  6. DICYCLOMINE                        /00068601/ [Concomitant]
     Dosage: UNK
     Route: 065
  7. FERROUS FUMARATE [Concomitant]
     Dosage: UNK
     Route: 065
  8. LACTULOSE [Concomitant]
     Dosage: UNK
     Route: 065
  9. OMEPRAZOLE [Concomitant]
     Dosage: UNK
     Route: 065
  10. PENTASA [Concomitant]
     Dosage: UNK
     Route: 065
  11. PREGABALIN [Concomitant]
     Dosage: UNK
     Route: 065
  12. SALBUTAMOL [Concomitant]
     Dosage: UNK
     Route: 065
  13. SERETIDE [Concomitant]
     Dosage: UNK
     Route: 065
  14. SERTRALINE [Concomitant]
     Dosage: UNK
     Route: 065
  15. TIOTROPIUM BROMIDE [Concomitant]
     Dosage: UNK
     Route: 065
  16. TRAMADOL [Concomitant]
     Dosage: UNK
     Route: 065

REACTIONS (4)
  - Pulmonary embolism [Not Recovered/Not Resolved]
  - Deep vein thrombosis [Unknown]
  - Incorrect route of drug administration [Unknown]
  - Off label use [Unknown]
